FAERS Safety Report 25599657 (Version 1)
Quarter: 2025Q3

REPORT INFORMATION
  Report Type: Spontaneous
  Country: BR (occurrence: BR)
  Receive Date: 20250724
  Receipt Date: 20250724
  Transmission Date: 20251020
  Serious: Yes (Other)
  Sender: BAXTER
  Company Number: BR-BAXTER-2025BAX018250

PATIENT
  Age: 71 Year
  Sex: Female

DRUGS (2)
  1. IRON [Suspect]
     Active Substance: IRON
     Dosage: 200 MG, 1X A WEEK, DILUTED WITH 250 ML OF SODIUM CHLORIDE, IN 45 MINUTES
     Route: 042
     Dates: start: 20250702
  2. SODIUM CHLORIDE [Suspect]
     Active Substance: SODIUM CHLORIDE
     Dosage: 250 ML, 1X A WEEK (WITH SUCROFER)
     Route: 042
     Dates: start: 20250702

REACTIONS (6)
  - Anaphylactic reaction [Recovered/Resolved]
  - Dysentery [Unknown]
  - Cyanosis [Unknown]
  - Rash [Unknown]
  - Vomiting [Unknown]
  - Product storage error [Unknown]

NARRATIVE: CASE EVENT DATE: 20250702
